FAERS Safety Report 10048385 (Version 3)
Quarter: 2014Q2

REPORT INFORMATION
  Report Type: Spontaneous
  Country: CO (occurrence: CO)
  Receive Date: 20140331
  Receipt Date: 20140417
  Transmission Date: 20141212
  Serious: Yes (Death, Other)
  Sender: FDA-Public Use
  Company Number: CO-BAYER-2014-046637

PATIENT
  Age: 63 Year
  Sex: Male

DRUGS (1)
  1. ALPHARADIN [Suspect]
     Indication: PROSTATE CANCER
     Dosage: UNK
     Dates: start: 20140312

REACTIONS (3)
  - Pneumonia [Fatal]
  - Genital herpes [None]
  - Neutropenia [None]
